FAERS Safety Report 6182170-0 (Version None)
Quarter: 2009Q2

REPORT INFORMATION
  Report Type: 
  Country: None (occurrence: None)
  Receive Date: 20090505
  Receipt Date: 20090505
  Transmission Date: 20091009
  Serious: Yes (Hospitalization)
  Sender: FDA-Public Use
  Company Number: None

PATIENT
  Age: 59 Year
  Sex: Male
  Weight: 78.4723 kg

DRUGS (6)
  1. CLOFARABINE [Suspect]
     Indication: DISEASE RECURRENCE
     Dosage: 4MG/M2 IV, DAYS 1-5 OF EACH 28 DAY CYCLE
     Route: 042
     Dates: start: 20090323, end: 20090329
  2. CLOFARABINE [Suspect]
     Indication: LYMPHOMA
     Dosage: 4MG/M2 IV, DAYS 1-5 OF EACH 28 DAY CYCLE
     Route: 042
     Dates: start: 20090323, end: 20090329
  3. MONONITRATE ER (IMDUR) [Concomitant]
  4. SENNA-DOCUSATE (SENOKOT-S) [Concomitant]
  5. MIRALAX [Concomitant]
  6. REGLAN [Concomitant]

REACTIONS (2)
  - BLOOD GLUCOSE INCREASED [None]
  - TREATMENT NONCOMPLIANCE [None]
